FAERS Safety Report 7561453-3 (Version None)
Quarter: 2011Q2

REPORT INFORMATION
  Report Type: 
  Country: None (occurrence: None)
  Receive Date: 20110621
  Receipt Date: 20110214
  Transmission Date: 20111010
  Serious: No
  Sender: FDA-Public Use
  Company Number: US-ASTRAZENECA-2011SE01815

PATIENT
  Age: 42 Month
  Sex: Female
  Weight: 26.3 kg

DRUGS (4)
  1. PULMICORT [Suspect]
     Indication: REACTIVE AIRWAYS DYSFUNCTION SYNDROME
     Route: 055
     Dates: start: 20090814, end: 20090819
  2. PULMICORT [Suspect]
     Route: 055
     Dates: start: 20110110
  3. PULMICORT [Suspect]
     Route: 055
     Dates: start: 20110110
  4. PULMICORT [Suspect]
     Indication: ASTHMA
     Route: 055
     Dates: start: 20090814, end: 20090819

REACTIONS (1)
  - ANGER [None]
